FAERS Safety Report 21222864 (Version 3)
Quarter: 2022Q3

REPORT INFORMATION
  Report Type: Spontaneous
  Country: CZ (occurrence: CZ)
  Receive Date: 20220817
  Receipt Date: 20220916
  Transmission Date: 20221027
  Serious: Yes (Hospitalization, Other)
  Sender: FDA-Public Use
  Company Number: None

PATIENT

DRUGS (1)
  1. METRONIDAZOLE [Suspect]
     Active Substance: METRONIDAZOLE
     Indication: Product used for unknown indication
     Dosage: 7.5 MILLIGRAM PER GRAM
     Route: 061
     Dates: start: 20210916

REACTIONS (4)
  - Squamous cell carcinoma of skin [Unknown]
  - Suspected product quality issue [Unknown]
  - Skin exfoliation [Unknown]
  - Application site vesicles [Unknown]

NARRATIVE: CASE EVENT DATE: 20210916
